FAERS Safety Report 6493394-7 (Version None)
Quarter: 2009Q4

REPORT INFORMATION
  Report Type: 
  Country: None (occurrence: None)
  Receive Date: 20091209
  Receipt Date: 20091124
  Transmission Date: 20100525
  Serious: Yes (Other)
  Sender: FDA-Public Use
  Company Number: 240014J09USA

PATIENT
  Age: 72 Year
  Sex: Female

DRUGS (6)
  1. NOVANTRONE [Suspect]
     Indication: MULTIPLE SCLEROSIS
     Dates: start: 20031101, end: 20080201
  2. REBIF [Suspect]
     Indication: MULTIPLE SCLEROSIS
     Dosage: 44 MCG, 3 IN 1 WEEKS, SUBCUTANEOUS
     Route: 058
     Dates: start: 20030207
  3. CRESTOR [Concomitant]
  4. OTHER UNSPECIFIED MEDICATIONS [Concomitant]
  5. ZOLOFT [Concomitant]
  6. LORAZEPAM [Concomitant]

REACTIONS (5)
  - ANXIETY [None]
  - ATRIOVENTRICULAR BLOCK [None]
  - CHEST DISCOMFORT [None]
  - MALIGNANT MELANOMA [None]
  - PAIN IN EXTREMITY [None]
